FAERS Safety Report 8122724-5 (Version None)
Quarter: 2012Q1

REPORT INFORMATION
  Report Type: 
  Country: None (occurrence: None)
  Receive Date: 20120208
  Receipt Date: 20120130
  Transmission Date: 20120608
  Serious: No
  Sender: FDA-Public Use
  Company Number: US-BIOGENIDEC-2012BI003757

PATIENT
  Sex: Female

DRUGS (3)
  1. TYSABRI [Suspect]
     Indication: MULTIPLE SCLEROSIS
     Route: 042
     Dates: start: 20090917, end: 20100527
  2. TYSABRI [Suspect]
     Route: 042
     Dates: start: 20110830
  3. AVONEX [Concomitant]
     Indication: MULTIPLE SCLEROSIS
     Route: 030
     Dates: start: 20070606

REACTIONS (4)
  - MULTIPLE SCLEROSIS [None]
  - ASTHENIA [None]
  - FATIGUE [None]
  - MIGRAINE [None]
